FAERS Safety Report 5522673-2 (Version None)
Quarter: 2007Q4

REPORT INFORMATION
  Report Type: 
  Country: None (occurrence: None)
  Receive Date: 20071120
  Receipt Date: 20071107
  Transmission Date: 20080405
  Serious: Yes (Hospitalization)
  Sender: FDA-Public Use
  Company Number: US-SHR-US-2007-042453

PATIENT
  Age: 47 Year
  Sex: Male

DRUGS (10)
  1. BETASERON [Suspect]
     Dosage: 8 MIU, EVERY 2D
     Route: 058
     Dates: start: 20070529
  2. AMLODIPINE [Concomitant]
     Dosage: 10 MG, 1X/DAY
  3. COUMADIN [Concomitant]
     Dosage: 1.5 MG, 1X/DAY
  4. CITALOPRAM [Concomitant]
     Dosage: 40 MG, 1X/DAY
  5. LISINOPRIL [Concomitant]
     Dosage: 40 MG, 1X/DAY
  6. NEXIUM [Concomitant]
     Dosage: 40 MG, 1X/DAY
  7. PENICILLIN ^GRUNENTHAL^ [Concomitant]
     Dosage: 4 TAB(S), UNK
  8. CARBAMAZEPINE [Concomitant]
     Dosage: 200 MG, 2 TABS 3X/DAY
  9. BACLOFEN [Concomitant]
     Dosage: 10 MG, 2 TABS 3X/DAY
  10. PREGABALIN [Concomitant]
     Dosage: 100 MG, 2 TABS 3X/DAY

REACTIONS (4)
  - CARDIAC ARREST [None]
  - EMBOLISM [None]
  - PROCEDURAL COMPLICATION [None]
  - THROMBOSIS [None]
